FAERS Safety Report 9499493 (Version 1)
Quarter: 2013Q1

REPORT INFORMATION
  Report Type: Spontaneous
  Country: US (occurrence: None)
  Receive Date: 20130116
  Receipt Date: 20130116
  Transmission Date: 20140127
  Serious: No
  Sender: FDA-Public Use
  Company Number: 1202USA03499

PATIENT
  Age: 68 Year
  Sex: Female

DRUGS (1)
  1. IVANZ [Suspect]
     Dosage: 1 G, BID, INTRAVENOUS
     Route: 042
     Dates: start: 20120221

REACTIONS (2)
  - Overdose [None]
  - No adverse event [None]
